FAERS Safety Report 12915365 (Version 1)
Quarter: 2016Q4

REPORT INFORMATION
  Report Type: Spontaneous
  Country: US (occurrence: US)
  Receive Date: 20161106
  Receipt Date: 20161106
  Transmission Date: 20170207
  Serious: No
  Sender: FDA-Public Use
  Company Number: US-RELYPSA-RLY2016002811

PATIENT
  Sex: Female

DRUGS (10)
  1. ULORIC [Concomitant]
     Active Substance: FEBUXOSTAT
     Dosage: 40 MG, QD
  2. WELCHOL [Concomitant]
     Active Substance: COLESEVELAM HYDROCHLORIDE
  3. DIFLUCAN [Concomitant]
     Active Substance: FLUCONAZOLE
     Dosage: 100 MG, TWICE WEEKLY
  4. MINOCYCLINE [Concomitant]
     Active Substance: MINOCYCLINE\MINOCYCLINE HYDROCHLORIDE
     Dosage: 100 MG, BID
  5. LISINOPRIL. [Concomitant]
     Active Substance: LISINOPRIL
     Dosage: 10 MG, QD
  6. ARMOUR THYROID [Concomitant]
     Active Substance: THYROID, PORCINE
     Dosage: 60 MG, QD
  7. MOLYBDENUM [Concomitant]
     Active Substance: MOLYBDENUM
     Dosage: 500 MG, QD
  8. NYSTATIN. [Concomitant]
     Active Substance: NYSTATIN
     Dosage: 500,000 QID
  9. VELTASSA [Suspect]
     Active Substance: PATIROMER
     Indication: HYPERKALAEMIA
     Dosage: 8.4 G, QD
     Route: 065
  10. CHLORELLA VULGARIS [Concomitant]
     Active Substance: CHLORELLA VULGARIS
     Dosage: 3 CAPSULES, BID

REACTIONS (1)
  - Myalgia [Not Recovered/Not Resolved]
